FAERS Safety Report 22272071 (Version 1)
Quarter: 2023Q2

REPORT INFORMATION
  Report Type: Spontaneous
  Country: US (occurrence: US)
  Receive Date: 20230502
  Receipt Date: 20230502
  Transmission Date: 20230722
  Serious: No
  Sender: FDA-Public Use
  Company Number: US-BAUSCH-BL-2023-006772

PATIENT
  Age: 62 Year
  Sex: Male
  Weight: 72.640 kg

DRUGS (2)
  1. RETIN-A MICRO [Suspect]
     Active Substance: TRETINOIN
     Indication: Acne
     Dosage: FOR 10-15 YEARS NOW
     Route: 061
     Dates: end: 20230424
  2. RETIN-A MICRO [Suspect]
     Active Substance: TRETINOIN
     Route: 061
     Dates: start: 20230426, end: 20230426

REACTIONS (3)
  - Application site erythema [Recovered/Resolved]
  - Application site irritation [Recovered/Resolved]
  - Product quality issue [Unknown]

NARRATIVE: CASE EVENT DATE: 20230424
